FAERS Safety Report 18641303 (Version 1)
Quarter: 2020Q4

REPORT INFORMATION
  Report Type: Spontaneous
  Country: US (occurrence: US)
  Receive Date: 20201221
  Receipt Date: 20201221
  Transmission Date: 20210114
  Serious: No
  Sender: FDA-Public Use
  Company Number: US-ALLERGAN-2034396US

PATIENT
  Age: 55 Year
  Sex: Female

DRUGS (1)
  1. BYSTOLIC [Suspect]
     Active Substance: NEBIVOLOL HYDROCHLORIDE
     Indication: HYPERTENSION
     Dosage: 5 MG, BID
     Dates: end: 202008

REACTIONS (5)
  - Drug ineffective [Unknown]
  - Product dispensing issue [Unknown]
  - Product coating issue [Unknown]
  - Illness [Unknown]
  - Palpitations [Unknown]

NARRATIVE: CASE EVENT DATE: 202008
